FAERS Safety Report 13896215 (Version 1)
Quarter: 2017Q3

REPORT INFORMATION
  Report Type: Spontaneous
  Country: US (occurrence: US)
  Receive Date: 20170823
  Receipt Date: 20170823
  Transmission Date: 20171127
  Serious: No
  Sender: FDA-Public Use
  Company Number: US-THE MEDICINES COMPANY-US-MDCO-17-00242

PATIENT
  Age: 39 Year
  Sex: Male
  Weight: 90.71 kg

DRUGS (1)
  1. ORBACTIV [Suspect]
     Active Substance: ORITAVANCIN
     Indication: STAPHYLOCOCCAL ABSCESS
     Dosage: NOT REPORTED
     Route: 041
     Dates: start: 20170525, end: 20170525

REACTIONS (4)
  - Chest discomfort [Recovered/Resolved]
  - Chest pain [Recovered/Resolved]
  - Back pain [Recovered/Resolved]
  - Flank pain [Recovered/Resolved]

NARRATIVE: CASE EVENT DATE: 20170525
